FAERS Safety Report 8103414-1 (Version None)
Quarter: 2012Q1

REPORT INFORMATION
  Report Type: 
  Country: None (occurrence: None)
  Receive Date: 20120127
  Receipt Date: 20120116
  Transmission Date: 20120608
  Serious: Yes (Other)
  Sender: FDA-Public Use
  Company Number: ACO_29168_2012

PATIENT
  Age: 59 Year
  Sex: Male
  Weight: 131.5 kg

DRUGS (8)
  1. ANTIHYPERTENSIVES (ANTIHYPERTENSIVES) [Concomitant]
  2. GLIPIZIDE [Concomitant]
  3. TYSABRI [Concomitant]
  4. ARICEPT [Concomitant]
  5. AMPYRA [Suspect]
     Indication: GAIT DISTURBANCE
     Dosage: 10 MG, BID, ORAL
     Route: 048
     Dates: start: 20111201, end: 20120101
  6. AMANTADINE HCL [Concomitant]
  7. ANTIHYPERTENSIVES (ANTIHYPERTENSIVES) [Suspect]
     Indication: PRODUCT USED FOR UNKNOWN INDICATION
     Dates: end: 20120101
  8. DIURETICS [Suspect]
     Indication: PRODUCT USED FOR UNKNOWN INDICATION
     Dates: end: 20120101

REACTIONS (1)
  - RENAL FAILURE ACUTE [None]
